FAERS Safety Report 11496567 (Version 1)
Quarter: 2015Q3

REPORT INFORMATION
  Report Type: Spontaneous
  Country: US (occurrence: US)
  Receive Date: 20150911
  Receipt Date: 20150911
  Transmission Date: 20151125
  Serious: Yes (Disabling)
  Sender: FDA-Public Use
  Company Number: US-SA-2015SA136977

PATIENT
  Sex: Female

DRUGS (3)
  1. WARFARIN [Concomitant]
     Active Substance: WARFARIN
  2. WARFARIN [Concomitant]
     Active Substance: WARFARIN
  3. LOVENOX [Suspect]
     Active Substance: ENOXAPARIN SODIUM
     Indication: MITRAL VALVE REPLACEMENT
     Route: 065
     Dates: start: 2012

REACTIONS (2)
  - Haemorrhage [Unknown]
  - Limb injury [Unknown]
